FAERS Safety Report 12134476 (Version 4)
Quarter: 2016Q4

REPORT INFORMATION
  Report Type: Spontaneous
  Country: BR (occurrence: BR)
  Receive Date: 20160301
  Receipt Date: 20161020
  Transmission Date: 20170206
  Serious: Yes (Other)
  Sender: FDA-Public Use
  Company Number: BR-JNJFOC-20160227805

PATIENT
  Age: 77 Year
  Sex: Female
  Weight: 48 kg

DRUGS (5)
  1. LEXOTAN [Concomitant]
     Active Substance: BROMAZEPAM
     Route: 065
  2. LOSARTAN. [Concomitant]
     Active Substance: LOSARTAN
     Route: 065
  3. SIMPONI [Suspect]
     Active Substance: GOLIMUMAB
     Indication: RHEUMATOID ARTHRITIS
     Route: 058
     Dates: start: 20140821
  4. SIMPONI [Suspect]
     Active Substance: GOLIMUMAB
     Indication: RHEUMATOID ARTHRITIS
     Route: 058
     Dates: start: 20140923
  5. ATENOLOL. [Concomitant]
     Active Substance: ATENOLOL
     Route: 065

REACTIONS (8)
  - Pain in extremity [Unknown]
  - Asthenia [Unknown]
  - Influenza [Unknown]
  - Arthritis [Unknown]
  - Memory impairment [Unknown]
  - Drug ineffective [Unknown]
  - Hyperkeratosis [Unknown]
  - Localised infection [Unknown]

NARRATIVE: CASE EVENT DATE: 20161016
